FAERS Safety Report 15786511 (Version 1)
Quarter: 2019Q1

REPORT INFORMATION
  Report Type: Spontaneous
  Country: US (occurrence: US)
  Receive Date: 20190103
  Receipt Date: 20190103
  Transmission Date: 20190417
  Serious: Yes (Hospitalization)
  Sender: FDA-Public Use
  Company Number: None

PATIENT
  Sex: Male

DRUGS (17)
  1. MIRALAX [Concomitant]
     Active Substance: POLYETHYLENE GLYCOL 3350
  2. TYLENOL [Concomitant]
     Active Substance: ACETAMINOPHEN
  3. CLOPIDOGREL [Concomitant]
     Active Substance: CLOPIDOGREL BISULFATE
  4. ONDANSETRON [Concomitant]
     Active Substance: ONDANSETRON
  5. DIAZEPAM. [Concomitant]
     Active Substance: DIAZEPAM
  6. SENNA LAXATIVE [Concomitant]
     Active Substance: SENNOSIDES
  7. ESCMEPRA MAG [Concomitant]
  8. BROMPSE DM [Concomitant]
  9. FLONASE [Concomitant]
     Active Substance: FLUTICASONE PROPIONATE
  10. SODIUM CHLOR [Concomitant]
     Active Substance: SODIUM CHLORIDE
  11. OSELTAMVIR [Concomitant]
  12. JADENU [Suspect]
     Active Substance: DEFERASIROX
     Indication: SICKLE CELL DISEASE
     Route: 048
     Dates: start: 20150819
  13. JADENU [Suspect]
     Active Substance: DEFERASIROX
     Indication: SICKLE CELL DISEASE
     Route: 048
     Dates: start: 20150819
  14. BACLOFEN. [Concomitant]
     Active Substance: BACLOFEN
  15. AZITHROMYCIN ANHYDROUS. [Concomitant]
     Active Substance: AZITHROMYCIN ANHYDROUS
  16. METRONIDAZOL [Concomitant]
     Active Substance: METRONIDAZOLE
  17. OXCARBAZEPIN [Concomitant]
     Active Substance: OXCARBAZEPINE

REACTIONS (3)
  - Diarrhoea [None]
  - Gastrointestinal disorder [None]
  - Pyrexia [None]
